FAERS Safety Report 14501317 (Version 1)
Quarter: 2018Q1

REPORT INFORMATION
  Report Type: Spontaneous
  Country: US (occurrence: US)
  Receive Date: 20180207
  Receipt Date: 20180207
  Transmission Date: 20180509
  Serious: No
  Sender: FDA-Public Use
  Company Number: US-AMGEN-USASP2017173993

PATIENT
  Sex: Female

DRUGS (1)
  1. NEULASTA [Suspect]
     Active Substance: PEGFILGRASTIM
     Indication: PROPHYLAXIS
     Dosage: UNK UNK, EVERY 2 WEEKS (AFTER CHEMO)
     Route: 065

REACTIONS (3)
  - Dermatitis allergic [Recovered/Resolved]
  - Ocular hyperaemia [Recovered/Resolved]
  - Eye swelling [Recovered/Resolved]

NARRATIVE: CASE EVENT DATE: 20171026
